FAERS Safety Report 7328737-5 (Version None)
Quarter: 2011Q1

REPORT INFORMATION
  Report Type: 
  Country: None (occurrence: None)
  Receive Date: 20110303
  Receipt Date: 20110218
  Transmission Date: 20110831
  Serious: Yes (Hospitalization)
  Sender: FDA-Public Use
  Company Number: PHHY2010TW64908

PATIENT
  Sex: Male
  Weight: 82 kg

DRUGS (3)
  1. SANDIMMUNE [Concomitant]
     Dosage: 150 MG, QD
     Dates: start: 20101007, end: 20101214
  2. EXJADE [Suspect]
     Indication: IRON OVERLOAD
     Dosage: 1875 MG DAILY
     Route: 048
     Dates: start: 20100906, end: 20100927
  3. SANDIMMUNE [Concomitant]
     Indication: APLASTIC ANAEMIA
     Dosage: 200 MG, QD
     Dates: start: 20100901, end: 20100927

REACTIONS (9)
  - HEPATIC FUNCTION ABNORMAL [None]
  - EYE SWELLING [None]
  - VOMITING [None]
  - BLOOD CREATININE INCREASED [None]
  - ERYTHEMA [None]
  - RENAL IMPAIRMENT [None]
  - ALANINE AMINOTRANSFERASE INCREASED [None]
  - ASPARTATE AMINOTRANSFERASE INCREASED [None]
  - PYREXIA [None]
